FAERS Safety Report 8458856-1 (Version None)
Quarter: 2012Q2

REPORT INFORMATION
  Report Type: 
  Country: None (occurrence: None)
  Receive Date: 20120622
  Receipt Date: 20120612
  Transmission Date: 20120825
  Serious: Yes (Other)
  Sender: FDA-Public Use
  Company Number: FI-ELI_LILLY_AND_COMPANY-FI201206004289

PATIENT
  Sex: Male

DRUGS (3)
  1. OLANZAPINE [Suspect]
     Dosage: 300 MG, 2/M
     Route: 030
     Dates: start: 20120601
  2. OLANZAPINE [Suspect]
     Dosage: 20 MG, QD
     Route: 048
  3. VALPROIC ACID [Concomitant]
     Dosage: 600 MG, QD

REACTIONS (8)
  - DIZZINESS [None]
  - HYPOKINESIA [None]
  - COORDINATION ABNORMAL [None]
  - NAUSEA [None]
  - DYSARTHRIA [None]
  - FALL [None]
  - SOMNOLENCE [None]
  - FATIGUE [None]
